FAERS Safety Report 4573772-3 (Version None)
Quarter: 2005Q1

REPORT INFORMATION
  Report Type: 
  Country: None (occurrence: None)
  Receive Date: 20050203
  Receipt Date: 20041104
  Transmission Date: 20050727
  Serious: Yes (Other)
  Sender: FDA-Public Use
  Company Number: 2004BI002099

PATIENT
  Age: 54 Year
  Sex: Female

DRUGS (6)
  1. AVONEX [Suspect]
     Indication: MULTIPLE SCLEROSIS
     Dosage: IM
     Route: 030
     Dates: end: 20040926
  2. NOVANTRONE [Concomitant]
  3. PROVIGIL [Concomitant]
  4. BACLOFEN [Concomitant]
  5. VITAMIN C [Concomitant]
  6. VITAMIN E [Concomitant]

REACTIONS (15)
  - BACK PAIN [None]
  - CARDIAC FAILURE CONGESTIVE [None]
  - CARDIOMEGALY [None]
  - CHEST PAIN [None]
  - ELECTROCARDIOGRAM POOR R-WAVE PROGRESSION [None]
  - EXERCISE TOLERANCE DECREASED [None]
  - FEELING HOT [None]
  - INSOMNIA [None]
  - MITRAL VALVE INCOMPETENCE [None]
  - MOVEMENT DISORDER [None]
  - PAIN IN EXTREMITY [None]
  - PULMONARY HYPERTENSION [None]
  - PULMONARY OEDEMA [None]
  - RIGHT VENTRICULAR FAILURE [None]
  - STOMACH DISCOMFORT [None]
